FAERS Safety Report 7435876-7 (Version None)
Quarter: 2011Q2

REPORT INFORMATION
  Report Type: 
  Country: None (occurrence: None)
  Receive Date: 20110425
  Receipt Date: 20110415
  Transmission Date: 20111010
  Serious: Yes (Hospitalization)
  Sender: FDA-Public Use
  Company Number: US-ASTRAZENECA-2011SE22130

PATIENT
  Age: 64 Year
  Sex: Male
  Weight: 120.2 kg

DRUGS (3)
  1. CRESTOR [Suspect]
     Indication: BLOOD CHOLESTEROL INCREASED
     Route: 048
     Dates: start: 20080101
  2. ALLOPURINOL [Concomitant]
  3. DICLOFENAC SODIUM [Concomitant]

REACTIONS (3)
  - ATRIAL FIBRILLATION [None]
  - WEIGHT DECREASED [None]
  - GOUTY ARTHRITIS [None]
